FAERS Safety Report 4660027-1 (Version None)
Quarter: 2005Q2

REPORT INFORMATION
  Report Type: 
  Country: None (occurrence: None)
  Receive Date: 20050512
  Receipt Date: 20050504
  Transmission Date: 20051028
  Serious: Yes (Hospitalization)
  Sender: FDA-Public Use
  Company Number: US-BOEHRINGER INGELHEIM PHARMACEUTICALS, INC.-2005-BP-07491BP

PATIENT
  Sex: Male

DRUGS (2)
  1. COMBIVENT [Suspect]
     Indication: EMPHYSEMA
     Route: 055
     Dates: start: 20030101
  2. COMBIVENT [Suspect]
     Indication: ASTHMA

REACTIONS (4)
  - BONE INFECTION [None]
  - DYSPNOEA [None]
  - LOCALISED INFECTION [None]
  - PALPITATIONS [None]
